FAERS Safety Report 9486018 (Version 1)
Quarter: 2013Q3

REPORT INFORMATION
  Report Type: Spontaneous
  Country: EG (occurrence: EG)
  Receive Date: 20130829
  Receipt Date: 20130829
  Transmission Date: 20140515
  Serious: Yes (Other)
  Sender: FDA-Public Use
  Company Number: EG-JNJFOC-20130810900

PATIENT
  Sex: 0

DRUGS (3)
  1. DOXORUBICIN HYDROCHLORIDE [Suspect]
     Indication: HEPATOCELLULAR CARCINOMA
     Route: 013
  2. CISPLATIN [Suspect]
     Indication: HEPATOCELLULAR CARCINOMA
     Route: 013
  3. EPIRUBICIN [Suspect]
     Indication: HEPATOCELLULAR CARCINOMA
     Route: 013

REACTIONS (3)
  - Blood albumin decreased [Unknown]
  - Off label use [Unknown]
  - Incorrect route of drug administration [Unknown]
